FAERS Safety Report 23827729 (Version 1)
Quarter: 2024Q2

REPORT INFORMATION
  Report Type: Spontaneous
  Country: US (occurrence: US)
  Receive Date: 20240507
  Receipt Date: 20240507
  Transmission Date: 20240716
  Serious: Yes (Other)
  Sender: FDA-Public Use
  Company Number: US-PFIZER INC-202400079992

PATIENT
  Age: 9 Year
  Sex: Female

DRUGS (1)
  1. OXBRYTA [Suspect]
     Active Substance: VOXELOTOR
     Indication: Sickle cell anaemia with crisis
     Dosage: 300 MG. TABLETS FOR ORAL SUSPENSION, PREPARE 3 TABLETES, ONCE DAILY, ORALLY.
     Route: 048
     Dates: start: 20231114

REACTIONS (2)
  - Sickle cell anaemia with crisis [Unknown]
  - Blood test abnormal [Unknown]
